FAERS Safety Report 7087953-0 (Version None)
Quarter: 2010Q4

REPORT INFORMATION
  Report Type: 
  Country: None (occurrence: None)
  Receive Date: 20101108
  Receipt Date: 20101026
  Transmission Date: 20110411
  Serious: Yes (Hospitalization)
  Sender: FDA-Public Use
  Company Number: US-US-EMD SERONO, INC.-7024595

PATIENT
  Sex: Male

DRUGS (4)
  1. REBIF [Suspect]
     Indication: MULTIPLE SCLEROSIS
     Route: 058
     Dates: start: 20101012, end: 20101020
  2. REBIF [Suspect]
     Route: 058
     Dates: start: 20101001, end: 20101020
  3. AVAPRO [Concomitant]
     Indication: HYPERTENSION
  4. VICODIN [Concomitant]
     Indication: NECK PAIN

REACTIONS (2)
  - ANGIOPATHY [None]
  - SPEECH DISORDER [None]
